FAERS Safety Report 9500676 (Version 1)
Quarter: 2013Q1

REPORT INFORMATION
  Report Type: Spontaneous
  Country: US (occurrence: None)
  Receive Date: 20130107
  Receipt Date: 20130107
  Transmission Date: 20140127
  Serious: No
  Sender: FDA-Public Use
  Company Number: PHEH2012US018423

PATIENT
  Age: 55 Year
  Sex: Female

DRUGS (3)
  1. GILENYA (FTY) CAPSULE, 0.5MG [Suspect]
     Indication: MULTIPLE SCLEROSIS
     Route: 048
     Dates: start: 201209
  2. LISINOPRIL SANDOZ [Suspect]
  3. BYSTOLIC (NEBIVOLOL HYDROCHLORIDE) [Concomitant]

REACTIONS (2)
  - Blood potassium increased [None]
  - Blood pressure increased [None]
